FAERS Safety Report 6950350 (Version 2)
Quarter: 2013Q1

REPORT INFORMATION
  Report Type: Spontaneous
  Country: US (occurrence: US)
  Receive Date: 20090324
  Receipt Date: 20130208
  Transmission Date: 20140127
  Serious: Yes (Hospitalization, Other)
  Sender: FDA-Public Use
  Company Number: US-ABBOTT-09P-163-0562917-00

PATIENT
  Sex: Female
  Weight: 86.26 kg

DRUGS (12)
  1. HUMIRA 40 MG/ 0.8 ML PRE-FILLED SYRINGE [Suspect]
     Indication: PALINDROMIC RHEUMATISM
     Route: 058
  2. HUMIRA 40 MG/ 0.8 ML PRE-FILLED SYRINGE [Suspect]
     Route: 058
  3. METHOTREXATE [Concomitant]
     Indication: PALINDROMIC RHEUMATISM
     Dosage: 6 TABS-15MG WEEKLY
     Route: 048
  4. PREDNISONE [Concomitant]
     Indication: PALINDROMIC RHEUMATISM
     Route: 048
  5. PREDNISONE [Concomitant]
     Dosage: 5MG IN THE MORNING AND 2.5MG AT NIGHT
  6. FISH OIL [Concomitant]
     Indication: MEDICAL DIET
     Route: 048
  7. CALCIUM [Concomitant]
     Indication: MINERAL SUPPLEMENTATION
     Route: 048
  8. FOLIC ACID [Concomitant]
     Indication: VITAMIN SUPPLEMENTATION
     Route: 048
  9. MULTIVITAMIN [Concomitant]
     Indication: VITAMIN SUPPLEMENTATION
     Route: 048
  10. CELEXA [Concomitant]
     Indication: PRODUCT USED FOR UNKNOWN INDICATION
  11. NEXIUM [Concomitant]
     Indication: GASTROOESOPHAGEAL REFLUX DISEASE
     Route: 048
  12. EPI-PEN [Concomitant]
     Indication: ARTHROPOD STING

REACTIONS (18)
  - Ovarian cyst [Unknown]
  - Neck pain [Recovered/Resolved]
  - Peroneal nerve palsy [Recovered/Resolved]
  - Intervertebral disc protrusion [Recovered/Resolved]
  - Musculoskeletal pain [Recovered/Resolved]
  - Spinal column stenosis [Recovered/Resolved]
  - Arthralgia [Recovering/Resolving]
  - Back pain [Recovered/Resolved]
  - Pain in extremity [Recovering/Resolving]
  - Muscular weakness [Unknown]
  - Mobility decreased [Unknown]
  - Paraesthesia [Not Recovered/Not Resolved]
  - Urinary tract infection [Unknown]
  - Osteonecrosis [Unknown]
  - Staphylococcal infection [Unknown]
  - Immunosuppression [Unknown]
  - Blood glucose increased [Unknown]
  - Fallopian tube cyst [Unknown]
